FAERS Safety Report 7402961-5 (Version None)
Quarter: 2011Q2

REPORT INFORMATION
  Report Type: 
  Country: None (occurrence: None)
  Receive Date: 20110408
  Receipt Date: 20110330
  Transmission Date: 20111010
  Serious: Yes (Other)
  Sender: FDA-Public Use
  Company Number: AU-JNJFOC-20110301112

PATIENT
  Sex: Female

DRUGS (3)
  1. STELARA [Suspect]
     Route: 058
  2. STELARA [Suspect]
     Indication: PSORIASIS
     Route: 058
  3. STELARA [Suspect]
     Route: 058

REACTIONS (1)
  - HYPERTHYROIDISM [None]
